FAERS Safety Report 21979266 (Version 2)
Quarter: 2023Q1

REPORT INFORMATION
  Report Type: Spontaneous
  Country: US (occurrence: US)
  Receive Date: 20230210
  Receipt Date: 20230224
  Transmission Date: 20230417
  Serious: Yes (Other)
  Sender: FDA-Public Use
  Company Number: US-SA-SAC20230209001657

PATIENT
  Age: 42 Year
  Sex: Female
  Weight: 99 kg

DRUGS (1)
  1. DUPIXENT [Suspect]
     Active Substance: DUPILUMAB
     Indication: Eosinophilic oesophagitis
     Dosage: 300 MG, FREQUENCY: OTHER
     Route: 058
     Dates: start: 20220816

REACTIONS (1)
  - Impaired gastric emptying [Unknown]
